FAERS Safety Report 6002196-7 (Version None)
Quarter: 2008Q4

REPORT INFORMATION
  Report Type: 
  Country: None (occurrence: None)
  Receive Date: 20081212
  Receipt Date: 20081202
  Transmission Date: 20090506
  Serious: Yes (Congenital Anomaly)
  Sender: FDA-Public Use
  Company Number: 2008AP000130

PATIENT
  Sex: Female

DRUGS (1)
  1. PAROXETINE HYDROCHLORIDE [Suspect]
     Dosage: 10 MG;QD;TRPL
     Route: 064
     Dates: start: 20040223, end: 20060414

REACTIONS (4)
  - ATRIAL SEPTAL DEFECT [None]
  - MATERNAL DRUGS AFFECTING FOETUS [None]
  - MITRAL VALVE INCOMPETENCE [None]
  - VENTRICULAR SEPTAL DEFECT [None]
